FAERS Safety Report 6363795-6 (Version None)
Quarter: 2009Q3

REPORT INFORMATION
  Report Type: 
  Country: None (occurrence: None)
  Receive Date: 20090919
  Receipt Date: 20090706
  Transmission Date: 20100115
  Serious: No
  Sender: FDA-Public Use
  Company Number: US-ABBOTT-09P-163-0584156-00

PATIENT
  Sex: Male
  Weight: 77.18 kg

DRUGS (5)
  1. HUMIRA [Suspect]
     Indication: ARTHRITIS
     Dosage: 160MG LOADING DOSE; 4 IN 1; DAY 15DAY; DAY ONE
     Dates: start: 20090617, end: 20090617
  2. HUMIRA [Suspect]
     Indication: COLITIS
     Dosage: 80MG; 2 IN 1 DAY
     Dates: start: 20090701, end: 20090701
  3. HUMIRA [Suspect]
  4. PENTASA [Concomitant]
     Indication: COLITIS
  5. IMURAN [Concomitant]
     Indication: IMMUNE SYSTEM DISORDER

REACTIONS (2)
  - DRUG PRESCRIBING ERROR [None]
  - MEDICATION ERROR [None]
